FAERS Safety Report 13541905 (Version 45)
Quarter: 2019Q2

REPORT INFORMATION
  Report Type: Report from Study
  Country: CA (occurrence: CA)
  Receive Date: 20170512
  Receipt Date: 20190527
  Transmission Date: 20190711
  Serious: Yes (Hospitalization, Other)
  Sender: FDA-Public Use
  Company Number: CA-BRISTOL-MYERS SQUIBB COMPANY-BMS-2017-039839

PATIENT
  Age: 40 Year
  Sex: Male

DRUGS (6)
  1. SUBLINOX [Concomitant]
     Active Substance: ZOLPIDEM TARTRATE
     Indication: PRODUCT USED FOR UNKNOWN INDICATION
     Dosage: 10 MG, UNK
     Route: 065
  2. YERVOY [Suspect]
     Active Substance: IPILIMUMAB
     Indication: MALIGNANT MELANOMA
     Dosage: 3 MG/KG, UNK
     Route: 042
     Dates: start: 20170419, end: 201706
  3. SYNTHROID [Concomitant]
     Active Substance: LEVOTHYROXINE SODIUM
     Indication: PRODUCT USED FOR UNKNOWN INDICATION
     Dosage: UNK
     Route: 065
  4. TRINTELLIX [Concomitant]
     Active Substance: VORTIOXETINE HYDROBROMIDE
     Indication: PRODUCT USED FOR UNKNOWN INDICATION
     Dosage: 15 MG, UNK
     Route: 065
  5. NIVOLUMAB [Suspect]
     Active Substance: NIVOLUMAB
     Indication: MALIGNANT MELANOMA
     Dosage: 480 MG, Q4WK
     Route: 042
     Dates: start: 20170419
  6. ROSUVASTATIN. [Concomitant]
     Active Substance: ROSUVASTATIN
     Indication: PRODUCT USED FOR UNKNOWN INDICATION
     Dosage: 10 MG, UNK
     Route: 065

REACTIONS (48)
  - Nausea [Recovering/Resolving]
  - Toothache [Unknown]
  - Pain [Not Recovered/Not Resolved]
  - Hot flush [Unknown]
  - Hypothyroidism [Unknown]
  - Blood magnesium increased [Unknown]
  - Somnolence [Unknown]
  - Blood chloride increased [Unknown]
  - Euphoric mood [Recovering/Resolving]
  - Arthralgia [Unknown]
  - Sleep apnoea syndrome [Recovering/Resolving]
  - Headache [Not Recovered/Not Resolved]
  - Dyspnoea [Recovering/Resolving]
  - Depression [Recovering/Resolving]
  - Off label use [Unknown]
  - Tri-iodothyronine decreased [Not Recovered/Not Resolved]
  - Eczema [Not Recovered/Not Resolved]
  - Vitiligo [Unknown]
  - Blood thyroid stimulating hormone decreased [Unknown]
  - Blood testosterone decreased [Unknown]
  - Decreased appetite [Recovering/Resolving]
  - Fatigue [Recovering/Resolving]
  - Hepatitis [Recovered/Resolved]
  - Thyroid function test abnormal [Not Recovered/Not Resolved]
  - Oedema [Unknown]
  - Prescribed overdose [Unknown]
  - Monocyte count increased [Unknown]
  - Dry skin [Unknown]
  - Disturbance in attention [Unknown]
  - Diverticulitis [Unknown]
  - Libido decreased [Recovering/Resolving]
  - Dry mouth [Not Recovered/Not Resolved]
  - Hypersomnia [Unknown]
  - Blood glucose increased [Unknown]
  - Anxiety [Recovering/Resolving]
  - Tooth infection [Recovering/Resolving]
  - Blood thyroid stimulating hormone increased [Not Recovered/Not Resolved]
  - Appetite disorder [Not Recovered/Not Resolved]
  - Musculoskeletal stiffness [Recovering/Resolving]
  - Influenza [Recovering/Resolving]
  - Diarrhoea [Recovering/Resolving]
  - Pyrexia [Recovering/Resolving]
  - Colitis [Unknown]
  - Thyroxine decreased [Not Recovered/Not Resolved]
  - Frequent bowel movements [Unknown]
  - Weight increased [Unknown]
  - Agitation [Unknown]
  - Cortisol abnormal [Unknown]

NARRATIVE: CASE EVENT DATE: 20170421
